FAERS Safety Report 7631747-1 (Version None)
Quarter: 2011Q3

REPORT INFORMATION
  Report Type: 
  Country: None (occurrence: None)
  Receive Date: 20110725
  Receipt Date: 20110302
  Transmission Date: 20111222
  Serious: No
  Sender: FDA-Public Use
  Company Number: US-BRISTOL-MYERS SQUIBB COMPANY-15583032

PATIENT
  Sex: Female

DRUGS (7)
  1. METOPROLOL TARTRATE [Concomitant]
  2. PANTOPRAZOLE [Concomitant]
  3. METFORMIN HCL [Concomitant]
  4. HYDROCHLOROTHIAZIDE [Concomitant]
  5. COUMADIN [Suspect]
  6. LIPITOR [Concomitant]
     Dosage: STOPPED LIPITOR A WEEK AGO
  7. OXYTROL [Concomitant]

REACTIONS (2)
  - CONSTIPATION [None]
  - DRY SKIN [None]
